FAERS Safety Report 8978378 (Version 2)
Quarter: 2013Q2

REPORT INFORMATION
  Report Type: Report from Study
  Country: DE (occurrence: DE)
  Receive Date: 20121220
  Receipt Date: 20130522
  Transmission Date: 20140414
  Serious: Yes (Death, Hospitalization, Other)
  Sender: FDA-Public Use
  Company Number: DE-ELI_LILLY_AND_COMPANY-DE201212006362

PATIENT
  Age: 80 Year
  Sex: Male
  Weight: 70.1 kg

DRUGS (3)
  1. PEMETREXED [Suspect]
     Indication: NON-SMALL CELL LUNG CANCER
     Dosage: 670 MG, FREQUENCY REPORTED AS ONCE
     Route: 042
     Dates: start: 20101013
  2. BEVACIZUMAB [Suspect]
     Indication: NON-SMALL CELL LUNG CANCER
     Dosage: 530 MG, FREQUENCY REPORTED AS ONCE
     Route: 042
     Dates: start: 20101013
  3. TAVANIC [Concomitant]
     Dosage: UNK
     Dates: start: 20101109, end: 20101119

REACTIONS (3)
  - Pancytopenia [Fatal]
  - Diarrhoea [Fatal]
  - Erysipelas [Recovered/Resolved]
